FAERS Safety Report 20633378 (Version 1)
Quarter: 2022Q1

REPORT INFORMATION
  Report Type: Spontaneous
  Country: ES (occurrence: ES)
  Receive Date: 20220324
  Receipt Date: 20220324
  Transmission Date: 20220423
  Serious: Yes (Other)
  Sender: FDA-Public Use
  Company Number: None

PATIENT
  Age: 69 Year
  Sex: Female

DRUGS (4)
  1. HUMIRA [Suspect]
     Active Substance: ADALIMUMAB
     Indication: Rheumatoid arthritis
     Dosage: HUMIRA 40 MG SOLUCION INYECTABLE EN PLUMA PRECARGADA, 2 PLUMAS PRECARGADAS DE 0,4 ML
     Route: 058
     Dates: start: 20190401
  2. NEXIUM [Concomitant]
     Active Substance: ESOMEPRAZOLE MAGNESIUM
     Indication: Product used for unknown indication
     Dosage: NEXIUM MUPS 40 MG COMPRIMIDOS GASTRORRESISTENTES , 28 COMPRIMIDOS
     Route: 048
     Dates: start: 20210301
  3. CHLORTHALIDONE [Concomitant]
     Active Substance: CHLORTHALIDONE
     Indication: Product used for unknown indication
     Dosage: HIGROTONA 50 MG COMPRIMIDOS , 30 COMPRIMIDOS
     Route: 048
     Dates: start: 20190606
  4. ARAVA [Concomitant]
     Active Substance: LEFLUNOMIDE
     Indication: Rheumatoid arthritis
     Dosage: ARAVA 20 MG COMPRIMIDOS RECUBIERTOS CON PELICULA, 30 COMPRIMIDOS (FRASCO)
     Route: 048
     Dates: start: 201704

REACTIONS (1)
  - Systemic lupus erythematosus [Unknown]

NARRATIVE: CASE EVENT DATE: 20211110
